FAERS Safety Report 3759885 (Version 11)
Quarter: 2015Q1

REPORT INFORMATION
  Report Type: Spontaneous
  Country: JP (occurrence: None)
  Receive Date: 20020131
  Receipt Date: 20150218
  Transmission Date: 20150721
  Serious: Yes (Life-Threatening, Hospitalization, Other)
  Sender: FDA-Public Use
  Company Number: 2002000251-FJ

PATIENT
  Age: 56 Year
  Sex: Male
  Weight: 52 kg

DRUGS (14)
  1. PREDONINE [Suspect]
     Active Substance: PREDNISOLONE\PREDNISOLONE ACETATE\PREDNISOLONE SODIUM SUCCINATE
     Indication: IMMUNOSUPPRESSANT DRUG THERAPY
     Route: 048
     Dates: start: 20000208, end: 20011030
  2. PREDNISOLONE (PREDNISOLONE) [Concomitant]
     Active Substance: PREDNISOLONE
  3. ADALAT L (NIFEDIPINE) [Concomitant]
  4. BENAMBAX (PENTAMIDINE ISETHIONATE) [Concomitant]
  5. FUNGIZONE (AMPHOTERICIN B) [Concomitant]
  6. METHYLPREDNISOLONE SODIUM SUCCINATE (METHYLPREDNISOLONE SODIUM SUCCINATE) [Concomitant]
  7. BLOPRESS (CANDESARTAN CILEXETIL) [Concomitant]
     Active Substance: CANDESARTAN CILEXETIL
  8. BREDININ [Suspect]
     Active Substance: MIZORIBINE
     Indication: IMMUNOSUPPRESSANT DRUG THERAPY
     Route: 048
     Dates: start: 20000208, end: 20020116
  9. SPANIDIN (GUSPERIMUS HYDROCHLORIDE) [Concomitant]
  10. PROGRAF [Suspect]
     Active Substance: TACROLIMUS\TACROLIMUS ANHYDROUS
     Indication: IMMUNOSUPPRESSANT DRUG THERAPY
     Route: 048
     Dates: start: 20000206, end: 20000207
  11. BAKTAR (SULFAMETHOXAZOLE, TRIMETHOPRIM) [Concomitant]
  12. FRANDOL S (ISOSORBIDE DINITRATE) [Concomitant]
  13. PROGRAF [Suspect]
     Active Substance: TACROLIMUS\TACROLIMUS ANHYDROUS
     Indication: RENAL TRANSPLANT
     Route: 041
     Dates: start: 20000208, end: 20000208
  14. HUMULIN R (INSULIN HUMAN) [Concomitant]

REACTIONS (8)
  - Kaposi^s sarcoma [None]
  - Kidney transplant rejection [None]
  - Gastric polyps [None]
  - Haemangioma [None]
  - Chronic gastritis [None]
  - Pneumatosis intestinalis [None]
  - Gastrointestinal disorder [None]
  - Human herpesvirus 8 infection [None]

NARRATIVE: CASE EVENT DATE: 20000823
